FAERS Safety Report 20960660 (Version 3)
Quarter: 2022Q4

REPORT INFORMATION
  Report Type: Other
  Country: RU (occurrence: None)
  Receive Date: 20220615
  Receipt Date: 20221213
  Transmission Date: 20230112
  Serious: Yes (Hospitalization, Other)
  Sender: FDA-Public Use
  Company Number: RU-ROCHE-3112163

PATIENT
  Age: 48 Year
  Sex: Male
  Weight: 75 kg

DRUGS (14)
  1. OCRELIZUMAB [Suspect]
     Active Substance: OCRELIZUMAB
     Indication: Relapsing-remitting multiple sclerosis
     Dosage: MOST RECENT DOSE ON 03/MAR/2021 PRIOR AE 600 MG
     Route: 042
     Dates: start: 20210217
  2. OCRELIZUMAB [Suspect]
     Active Substance: OCRELIZUMAB
     Route: 042
     Dates: start: 20211109, end: 20211109
  3. OCRELIZUMAB [Suspect]
     Active Substance: OCRELIZUMAB
     Route: 042
     Dates: start: 20210217, end: 20210217
  4. OCRELIZUMAB [Suspect]
     Active Substance: OCRELIZUMAB
     Route: 042
     Dates: start: 20221205, end: 20221205
  5. OCRELIZUMAB [Suspect]
     Active Substance: OCRELIZUMAB
     Route: 042
     Dates: start: 20220602, end: 20220602
  6. OCRELIZUMAB [Suspect]
     Active Substance: OCRELIZUMAB
     Route: 042
     Dates: start: 20210303, end: 20210303
  7. KETOROLAC [Concomitant]
     Active Substance: KETOROLAC TROMETHAMINE
     Route: 048
     Dates: start: 202012
  8. CHLOROPYRAMINE [Concomitant]
     Active Substance: CHLOROPYRAMINE
     Dosage: ONCE BEFORE INFUSION
     Route: 042
     Dates: start: 20211109, end: 20211109
  9. CHLORPROMAZINE [Concomitant]
     Active Substance: CHLORPROMAZINE
     Dosage: ONCE BEFORE INFUSION
     Route: 042
     Dates: start: 20220602, end: 20220602
  10. METHYLPREDNISOLONE [Concomitant]
     Active Substance: METHYLPREDNISOLONE
     Route: 042
     Dates: start: 20220602, end: 20220602
  11. METHYLPREDNISOLONE [Concomitant]
     Active Substance: METHYLPREDNISOLONE
     Dosage: ONCE BEFORE INFUSION
     Route: 042
     Dates: start: 20211109, end: 20211109
  12. BACLOFEN [Concomitant]
     Active Substance: BACLOFEN
     Route: 065
     Dates: start: 20221101
  13. VITAMIN D3 [Concomitant]
     Active Substance: CHOLECALCIFEROL
     Route: 065
     Dates: start: 20220515
  14. EUTHYROX [Concomitant]
     Active Substance: LEVOTHYROXINE SODIUM
     Route: 065
     Dates: start: 20220405

REACTIONS (2)
  - Thyroid adenoma [Recovered/Resolved]
  - Papillary thyroid cancer [Not Recovered/Not Resolved]

NARRATIVE: CASE EVENT DATE: 20210709
